FAERS Safety Report 7909326-8 (Version None)
Quarter: 2011Q4

REPORT INFORMATION
  Report Type: 
  Country: None (occurrence: None)
  Receive Date: 20111111
  Receipt Date: 20111031
  Transmission Date: 20120403
  Serious: No
  Sender: FDA-Public Use
  Company Number: US-B.I. PHARMACEUTICALS,INC./RIDGEFIELD-2011-BP-25328BP

PATIENT
  Sex: Female

DRUGS (4)
  1. ZYNTHROID [Concomitant]
     Indication: THYROID DISORDER
  2. PRADAXA [Suspect]
     Indication: ATRIAL FIBRILLATION
     Dosage: 300 MG
     Route: 048
     Dates: start: 20101101
  3. ZEBETA [Concomitant]
     Indication: CARDIAC DISORDER
  4. PRIMERIN [Concomitant]
     Indication: HORMONE THERAPY

REACTIONS (2)
  - DIARRHOEA [None]
  - FUNGAL INFECTION [None]
